FAERS Safety Report 20185036 (Version 2)
Quarter: 2022Q2

REPORT INFORMATION
  Report Type: Report from Study
  Country: US (occurrence: US)
  Receive Date: 20211215
  Receipt Date: 20220524
  Transmission Date: 20220721
  Serious: Yes (Other)
  Sender: FDA-Public Use
  Company Number: US-ABBVIE-21K-163-4197388-00

PATIENT
  Age: 51 Year
  Sex: Male

DRUGS (1)
  1. SKYRIZI [Suspect]
     Active Substance: RISANKIZUMAB-RZAA
     Indication: Psoriasis
     Route: 058
     Dates: start: 20211114

REACTIONS (4)
  - Ligament sprain [Unknown]
  - Ankle fracture [Unknown]
  - Gait disturbance [Unknown]
  - Neck pain [Unknown]

NARRATIVE: CASE EVENT DATE: 20211101
